FAERS Safety Report 6013298-3 (Version None)
Quarter: 2008Q4

REPORT INFORMATION
  Report Type: 
  Country: None (occurrence: None)
  Receive Date: 20081216
  Receipt Date: 20080220
  Transmission Date: 20090506
  Serious: Yes (Other)
  Sender: FDA-Public Use
  Company Number: US-WYE-H00456407

PATIENT
  Age: 25 Year
  Sex: Female
  Weight: 108.96 kg

DRUGS (3)
  1. EFFEXOR XR [Suspect]
     Indication: DEPRESSION
     Dosage: 150 MG 1X PER 1 DAY, ORAL
     Route: 048
     Dates: start: 20070901, end: 20071001
  2. XANAX [Concomitant]
  3. SEASONALE (0.15MG LEVONORGESTREL/0.03MG ETHINYL ESTRADIOL) [Concomitant]

REACTIONS (1)
  - URINARY RETENTION [None]
